FAERS Safety Report 22012285 (Version 2)
Quarter: 2023Q1

REPORT INFORMATION
  Report Type: Spontaneous
  Country: IT (occurrence: IT)
  Receive Date: 20230220
  Receipt Date: 20230303
  Transmission Date: 20230418
  Serious: Yes (Disabling)
  Sender: FDA-Public Use
  Company Number: IT-GILEAD-2023-0617408

PATIENT
  Sex: Male

DRUGS (1)
  1. EPCLUSA [Suspect]
     Active Substance: SOFOSBUVIR\VELPATASVIR
     Indication: Hepatitis C
     Dosage: UNK
     Route: 065

REACTIONS (2)
  - Treatment failure [Not Recovered/Not Resolved]
  - Drug ineffective [Unknown]
